FAERS Safety Report 15090583 (Version 1)
Quarter: 2018Q2

REPORT INFORMATION
  Report Type: Spontaneous
  Country: US (occurrence: US)
  Receive Date: 20180629
  Receipt Date: 20180629
  Transmission Date: 20180711
  Serious: No
  Sender: FDA-Public Use
  Company Number: US-PFIZER INC-2018262730

PATIENT
  Age: 46 Year
  Sex: Female
  Weight: 96.16 kg

DRUGS (5)
  1. ESOMEPRAZOLE [Concomitant]
     Active Substance: ESOMEPRAZOLE
     Dosage: 40 MG, 1X/DAY
     Route: 048
  2. FISH OIL [Concomitant]
     Active Substance: FISH OIL
     Indication: VITAMIN SUPPLEMENTATION
     Dosage: ONE A DAY BY MOUTH
     Route: 048
  3. PRISTIQ EXTENDED-RELEASE [Suspect]
     Active Substance: DESVENLAFAXINE SUCCINATE
     Indication: ANXIETY
     Dosage: 50 MG, 1X/DAY
     Route: 048
  4. LORAZEPAM. [Concomitant]
     Active Substance: LORAZEPAM
     Indication: ANXIETY
     Dosage: 0.5 MG, AS NEEDED, 0.5 MG AS NEEDED BY MOUTH
     Route: 048
  5. CULTURELLE [Concomitant]
     Active Substance: LACTOBACILLUS RHAMNOSUS
     Indication: PROBIOTIC THERAPY
     Dosage: ONE A DAY BY MOUTH

REACTIONS (6)
  - Headache [Not Recovered/Not Resolved]
  - Product quality issue [Unknown]
  - Withdrawal syndrome [Not Recovered/Not Resolved]
  - Dizziness [Not Recovered/Not Resolved]
  - Drug ineffective [Not Recovered/Not Resolved]
  - Nausea [Not Recovered/Not Resolved]

NARRATIVE: CASE EVENT DATE: 20180625
